FAERS Safety Report 9248504 (Version 1)
Quarter: 2013Q1

REPORT INFORMATION
  Report Type: Spontaneous
  Country: US (occurrence: None)
  Receive Date: 20130305
  Receipt Date: 20130305
  Transmission Date: 20140127
  Serious: Yes (Hospitalization, Disabling, Other)
  Sender: FDA-Public Use
  Company Number: 163-21880-12060946 (0)

PATIENT
  Age: 75 Year
  Sex: Female

DRUGS (10)
  1. REVLIMID [Suspect]
     Indication: PLASMA CELL MYELOMA
     Dosage: 21 IN 28 D
     Route: 048
     Dates: start: 20120409, end: 2012
  2. TREANDA (BENDAMUSTINE HYDROCHLORIDE) [Concomitant]
  3. FERRITIN (FERRITIN) [Concomitant]
  4. ECOTRIN (ACETYLSALICYLIC ACID) [Concomitant]
  5. ASA (ACETYLSALICYLIC ACID) [Concomitant]
  6. DECADRON (DEXAMETHASONE) [Concomitant]
  7. VITAMINS [Concomitant]
  8. VITAMIN B12 (CYANOCOBALAMIN) [Concomitant]
  9. SYNTHROID (LEVOTHYROXINE SODIUM) [Concomitant]
  10. MIDODRINE (MIDODRINE) [Concomitant]

REACTIONS (4)
  - Anaemia [None]
  - Platelet count decreased [None]
  - Renal failure [None]
  - Plasma cell myeloma [None]
